FAERS Safety Report 7511841-6 (Version None)
Quarter: 2011Q2

REPORT INFORMATION
  Report Type: 
  Country: None (occurrence: None)
  Receive Date: 20110531
  Receipt Date: 20110523
  Transmission Date: 20111010
  Serious: Yes (Other)
  Sender: FDA-Public Use
  Company Number: GB-PFIZER INC-HQWYE017414APR05

PATIENT
  Age: 77 Year
  Sex: Male

DRUGS (14)
  1. LANSOPRAZOLE [Suspect]
     Indication: PEPTIC ULCER
     Dosage: 30.0 MG, 1X/DAY
     Route: 048
     Dates: start: 20050127, end: 20050201
  2. FUROSEMIDE [Concomitant]
     Route: 042
  3. PIPERACILLIN [Concomitant]
     Dosage: UNK
     Route: 042
     Dates: start: 20041231, end: 20050117
  4. LINEZOLID [Suspect]
     Indication: STAPHYLOCOCCAL INFECTION
     Dosage: 600.0 MG, 2X/DAY
     Route: 042
     Dates: start: 20050104, end: 20050120
  5. INSULIN [Concomitant]
     Route: 042
  6. NOREPINEPHRINE BITARTRATE [Concomitant]
     Dosage: UNK
     Route: 042
     Dates: start: 20050102, end: 20050111
  7. PROPOFOL [Concomitant]
     Dosage: UNK
     Route: 042
     Dates: start: 20050102, end: 20050105
  8. PANTOPRAZOLE [Suspect]
     Indication: PEPTIC ULCER
     Dosage: 40.0 MG, 1X/DAY
     Route: 042
     Dates: start: 20050102, end: 20050127
  9. ALFENTANIL [Concomitant]
     Dosage: UNK
     Route: 042
     Dates: start: 20040102, end: 20050124
  10. FLUCLOXACILLIN [Concomitant]
     Dosage: UNK
     Route: 042
     Dates: start: 20041230, end: 20050104
  11. METOCLOPRAMIDE [Concomitant]
     Dosage: UNK
     Route: 042
     Dates: start: 20041224, end: 20050124
  12. TEICOPLANIN [Concomitant]
     Dosage: UNK
     Route: 042
     Dates: start: 20041231, end: 20050104
  13. AMIODARONE [Concomitant]
     Dosage: UNK
     Route: 042
     Dates: start: 20050102, end: 20050106
  14. HEPARIN [Concomitant]
     Dosage: UNK
     Route: 042
     Dates: start: 20041228

REACTIONS (2)
  - RENAL FAILURE ACUTE [None]
  - LIVER FUNCTION TEST ABNORMAL [None]
